FAERS Safety Report 8051385-9 (Version None)
Quarter: 2012Q1

REPORT INFORMATION
  Report Type: 
  Country: None (occurrence: None)
  Receive Date: 20120117
  Receipt Date: 20120105
  Transmission Date: 20120608
  Serious: Yes (Hospitalization, Other)
  Sender: FDA-Public Use
  Company Number: US-ASTRAZENECA-2012SE00052

PATIENT
  Age: 53 Year
  Sex: Female
  Weight: 67.1 kg

DRUGS (22)
  1. LEVOTHYROXINE SODIUM [Concomitant]
  2. BYSTOLIC [Concomitant]
  3. ARMITEX SQ [Concomitant]
     Indication: MIGRAINE
     Dosage: UNKNOWN DOSE AS REQUIRED
  4. HYDROMORPHINE [Concomitant]
     Indication: BLADDER PAIN
  5. LOSARTAN POTASSIUM [Concomitant]
     Dosage: UNKNOWN DOSE TWO TIMES A DAY
  6. ALIGN [Concomitant]
  7. SEROQUEL [Suspect]
     Indication: DEPRESSION
     Route: 048
     Dates: start: 20080101
  8. SEROQUEL [Suspect]
     Indication: SLEEP DISORDER
     Route: 048
     Dates: start: 20080101
  9. SEROQUEL [Suspect]
     Route: 048
  10. SEROQUEL [Suspect]
     Route: 048
  11. CYMBALTA [Concomitant]
     Dosage: 60
  12. SYSTANE [Concomitant]
  13. RUSTASUS [Concomitant]
     Dosage: 0.5 CC BID
  14. RELPAX [Concomitant]
     Indication: MIGRAINE
  15. NEXIUM [Suspect]
     Route: 048
  16. SATNO PATCH [Concomitant]
  17. DOPOMAX [Concomitant]
  18. TORADOL [Concomitant]
     Dosage: UNKNOWN DOSE AS REQUIRED
  19. CLONOPIN [Concomitant]
  20. TAMSULOSIN HCL [Concomitant]
     Indication: BLADDER DISORDER
  21. ELMIRON [Concomitant]
  22. CLOBAX [Concomitant]

REACTIONS (10)
  - DYSPNOEA EXERTIONAL [None]
  - RESTLESS LEGS SYNDROME [None]
  - CARDIAC DISORDER [None]
  - SEROTONIN SYNDROME [None]
  - TACHYCARDIA [None]
  - HEART RATE IRREGULAR [None]
  - BLADDER DISORDER [None]
  - BIPOLAR DISORDER [None]
  - ELECTROCARDIOGRAM ABNORMAL [None]
  - CYSTITIS INTERSTITIAL [None]
